FAERS Safety Report 6925133-7 (Version None)
Quarter: 2010Q3

REPORT INFORMATION
  Report Type: 
  Country: None (occurrence: None)
  Receive Date: 20100816
  Receipt Date: 20100805
  Transmission Date: 20110219
  Serious: Yes (Death, Other)
  Sender: FDA-Public Use
  Company Number: US-JNJFOC-20100802110

PATIENT
  Sex: Female

DRUGS (11)
  1. REMICADE [Suspect]
     Indication: RHEUMATOID ARTHRITIS
     Route: 042
  2. REMICADE [Suspect]
     Route: 042
  3. BENADRYL [Concomitant]
     Indication: PREMEDICATION
     Route: 048
  4. ACETAMINOPHEN [Concomitant]
     Indication: PREMEDICATION
  5. FOLIC ACID [Concomitant]
     Route: 048
  6. METHOTREXATE [Concomitant]
     Indication: RHEUMATOID ARTHRITIS
     Route: 048
  7. OMEPRAZOLE [Concomitant]
     Route: 048
  8. SIMVASTATIN [Concomitant]
     Route: 048
  9. CYMBALTA [Concomitant]
     Route: 048
  10. ALENDRONATE SODIUM [Concomitant]
     Route: 048
  11. FLECAINIDE ACETATE [Concomitant]
     Route: 048

REACTIONS (4)
  - DEATH [None]
  - HERPES ZOSTER [None]
  - HIP FRACTURE [None]
  - INFUSION RELATED REACTION [None]
